FAERS Safety Report 25137275 (Version 3)
Quarter: 2025Q2

REPORT INFORMATION
  Report Type: Spontaneous
  Country: CH (occurrence: CH)
  Receive Date: 20250329
  Receipt Date: 20250407
  Transmission Date: 20250716
  Serious: Yes (Death, Hospitalization)
  Sender: ROCHE
  Company Number: CH-ROCHE-10000243622

PATIENT
  Age: 78 Year

DRUGS (8)
  1. MABTHERA [Suspect]
     Active Substance: RITUXIMAB
     Indication: Mantle cell lymphoma
     Route: 065
     Dates: start: 20130828, end: 20140116
  2. MABTHERA [Suspect]
     Active Substance: RITUXIMAB
     Route: 065
     Dates: start: 20140212, end: 20160509
  3. OBINUTUZUMAB [Suspect]
     Active Substance: OBINUTUZUMAB
     Indication: Mantle cell lymphoma
     Route: 065
     Dates: start: 20241204
  4. VENETOCLAX [Suspect]
     Active Substance: VENETOCLAX
     Indication: Mantle cell lymphoma
     Route: 065
  5. BENDAMUSTINE [Suspect]
     Active Substance: BENDAMUSTINE
     Indication: Mantle cell lymphoma
     Route: 065
     Dates: start: 20220815, end: 20230111
  6. zanobrutinib [Concomitant]
     Route: 048
     Dates: start: 20230914, end: 202406
  7. PIRTOBRUTINIB [Concomitant]
     Active Substance: PIRTOBRUTINIB
     Dates: end: 202411
  8. TECARTUS [Concomitant]
     Active Substance: BREXUCABTAGENE AUTOLEUCEL
     Indication: Mantle cell lymphoma

REACTIONS (3)
  - Disease progression [Fatal]
  - Respiratory failure [Unknown]
  - Blood lactate dehydrogenase increased [Unknown]

NARRATIVE: CASE EVENT DATE: 20241204
